FAERS Safety Report 6242147-3 (Version None)
Quarter: 2009Q2

REPORT INFORMATION
  Report Type: 
  Country: None (occurrence: None)
  Receive Date: 20090622
  Receipt Date: 20090622
  Transmission Date: 20091009
  Serious: Yes (Other)
  Sender: FDA-Public Use
  Company Number: None

PATIENT
  Age: 49 Year
  Sex: Male
  Weight: 127.0072 kg

DRUGS (2)
  1. VICODIN [Suspect]
     Indication: SPINAL FUSION SURGERY
     Dosage: 1 TABLET (7.5 - 750 MG) EVERY 6 HRS BY MOUTH
     Route: 048
     Dates: start: 20090609, end: 20090613
  2. VICODIN [Suspect]
     Indication: TRIGEMINAL NEURALGIA
     Dosage: 1 TABLET (7.5 - 750 MG) EVERY 6 HRS BY MOUTH
     Route: 048
     Dates: start: 20090609, end: 20090613

REACTIONS (3)
  - DRUG INEFFECTIVE [None]
  - PRODUCT COUNTERFEIT [None]
  - PRODUCT SUBSTITUTION ISSUE [None]
